FAERS Safety Report 9492792 (Version 1)
Quarter: 2013Q3

REPORT INFORMATION
  Report Type: Spontaneous
  Country: BR (occurrence: BR)
  Receive Date: 20130830
  Receipt Date: 20130830
  Transmission Date: 20140515
  Serious: Yes (Other)
  Sender: FDA-Public Use
  Company Number: BR-PFIZER INC-2013250458

PATIENT
  Age: 70 Year
  Sex: Female
  Weight: 51 kg

DRUGS (3)
  1. XALATAN [Suspect]
     Indication: INTRAOCULAR PRESSURE INCREASED
     Dosage: 1 DROP IN EACH EYE (3 UG), 1X/DAY (AT NIGHT)
     Route: 047
     Dates: start: 20110921, end: 20130825
  2. LIPITOR [Suspect]
     Indication: BLOOD CHOLESTEROL INCREASED
     Dosage: 10 MG, 1X/DAY
     Route: 048
     Dates: start: 20110209
  3. NORVASC [Suspect]
     Indication: HYPERTENSION
     Dosage: 1 TABLET OF 5 MG, 1X/DAY
     Route: 048
     Dates: start: 20030827

REACTIONS (1)
  - Cataract [Unknown]
